FAERS Safety Report 22257914 (Version 3)
Quarter: 2023Q2

REPORT INFORMATION
  Report Type: Other
  Country: GB (occurrence: GB)
  Receive Date: 20230427
  Receipt Date: 20230519
  Transmission Date: 20230721
  Serious: Yes (Life-Threatening, Hospitalization, Other)
  Sender: FDA-Public Use
  Company Number: GB-MACLEODS PHARMA EU LTD-MAC2023040977

PATIENT

DRUGS (51)
  1. CANDESARTAN [Suspect]
     Active Substance: CANDESARTAN
     Indication: Cerebrovascular accident prophylaxis
     Dosage: 1 DOSAGE FORM, QD
     Route: 048
     Dates: start: 20220222
  2. CANDESARTAN [Suspect]
     Active Substance: CANDESARTAN
     Indication: Atrial fibrillation
  3. LEVOTHYROXINE [Suspect]
     Active Substance: LEVOTHYROXINE
     Indication: Ill-defined disorder
     Dosage: 12 MICROGRAM, QD, TABLET
     Route: 065
  4. LEVOTHYROXINE [Suspect]
     Active Substance: LEVOTHYROXINE
     Dosage: UNK
     Route: 065
     Dates: start: 20210628
  5. DAPAGLIFLOZIN [Suspect]
     Active Substance: DAPAGLIFLOZIN
     Indication: Ill-defined disorder
     Dosage: UNK
     Route: 048
     Dates: start: 20220512
  6. DAPAGLIFLOZIN [Suspect]
     Active Substance: DAPAGLIFLOZIN
     Dosage: 10 MILLIGRAM, QD (TABLET)
     Route: 048
     Dates: start: 20230217
  7. ESOMEPRAZOLE [Suspect]
     Active Substance: ESOMEPRAZOLE
     Indication: Reflux laryngitis
     Dosage: 40 MILLIGRAM (ESOMEPRAZOLE MAGNESIUM)
     Route: 065
  8. LANSOPRAZOLE [Suspect]
     Active Substance: LANSOPRAZOLE
     Indication: Atrial fibrillation
     Dosage: 30 MILLIGRAM, QD, CAPSULE
     Route: 065
  9. LANSOPRAZOLE [Suspect]
     Active Substance: LANSOPRAZOLE
     Dosage: UNK UNK, QD
     Route: 065
     Dates: start: 20210628
  10. LINAGLIPTIN [Suspect]
     Active Substance: LINAGLIPTIN
     Indication: Product used for unknown indication
     Dosage: 5 MILLIGRAM, QD
     Route: 065
  11. BISOPROLOL [Suspect]
     Active Substance: BISOPROLOL
     Indication: Cerebrovascular accident prophylaxis
     Dosage: 10 MILLIGRAM, QD
     Route: 065
  12. BISOPROLOL [Suspect]
     Active Substance: BISOPROLOL
     Dosage: UNK, QD
     Route: 065
     Dates: start: 20230301
  13. BISOPROLOL [Suspect]
     Active Substance: BISOPROLOL
     Dosage: UNK
     Route: 065
     Dates: start: 20221123
  14. APIXABAN [Suspect]
     Active Substance: APIXABAN
     Indication: Cerebrovascular accident prophylaxis
     Dosage: 10 MILLIGRAM, QD
     Route: 042
     Dates: start: 20180207, end: 20180207
  15. APIXABAN [Suspect]
     Active Substance: APIXABAN
     Indication: Atrial fibrillation
     Dosage: UNK
     Route: 065
  16. CETIRIZINE HYDROCHLORIDE [Suspect]
     Active Substance: CETIRIZINE HYDROCHLORIDE
     Indication: Product used for unknown indication
     Dosage: 10 MILLIGRAM, QD
     Route: 048
  17. ASTRAZENECA COVID-19 VACCINE [Suspect]
     Active Substance: AZD-1222
     Indication: COVID-19 immunisation
     Dosage: UNK, COVID-19 VACCINE NRVV AD (CHADOX1 NCOV-19
     Route: 030
  18. ASTRAZENECA COVID-19 VACCINE [Suspect]
     Active Substance: AZD-1222
     Indication: COVID-19 immunisation
     Dosage: UNK, COVID-19 VACCINE NRVV AD (CHADOX1 NCOV-19
     Route: 030
  19. ASTRAZENECA COVID-19 VACCINE [Suspect]
     Active Substance: AZD-1222
     Dosage: , UNK, COVID-19 VACCINE NRVV AD (CHADOX1 NCOV-19UNK
     Route: 030
     Dates: start: 20210208, end: 20210208
  20. ASTRAZENECA COVID-19 VACCINE [Suspect]
     Active Substance: AZD-1222
     Dosage: UNK, COVID-19 VACCINE NRVV AD (CHADOX1 NCOV-19
     Route: 030
     Dates: start: 20210221
  21. ASTRAZENECA COVID-19 VACCINE [Suspect]
     Active Substance: AZD-1222
     Dosage: , UNK, COVID-19 VACCINE NRVV AD (CHADOX1 NCOV-19UNK
     Route: 030
     Dates: start: 20210312, end: 20210312
  22. ASTRAZENECA COVID-19 VACCINE [Suspect]
     Active Substance: AZD-1222
     Dosage: UNK, COVID-19 VACCINE NRVV AD (CHADOX1 NCOV-19
     Route: 030
     Dates: start: 20210312
  23. ASTRAZENECA COVID-19 VACCINE [Suspect]
     Active Substance: AZD-1222
     Dosage: UNK, COVID-19 VACCINE NRVV AD (CHADOX1 NCOV-19
     Route: 030
     Dates: start: 20210507
  24. ASTRAZENECA COVID-19 VACCINE [Suspect]
     Active Substance: AZD-1222
     Dosage: UNK, COVID-19 VACCINE NRVV AD (CHADOX1 NCOV-19
     Route: 030
     Dates: start: 20210517
  25. ASTRAZENECA COVID-19 VACCINE [Suspect]
     Active Substance: AZD-1222
     Dosage: , UNK, COVID-19 VACCINE NRVV AD (CHADOX1 NCOV-19UNK
     Route: 065
     Dates: start: 20210601, end: 20220512
  26. ASTRAZENECA COVID-19 VACCINE [Suspect]
     Active Substance: AZD-1222
     Dosage: UNK, COVID-19 VACCINE NRVV AD (CHADOX1 NCOV-19
     Route: 030
     Dates: start: 20210605
  27. ASTRAZENECA COVID-19 VACCINE [Suspect]
     Active Substance: AZD-1222
     Dosage: UNK, COVID-19 VACCINE NRVV AD (CHADOX1 NCOV-19
     Route: 030
     Dates: start: 20210622, end: 20210622
  28. ASTRAZENECA COVID-19 VACCINE [Suspect]
     Active Substance: AZD-1222
     Dosage: UNK, COVID-19 VACCINE NRVV AD (CHADOX1 NCOV-19
     Route: 030
     Dates: start: 20210625
  29. ASTRAZENECA COVID-19 VACCINE [Suspect]
     Active Substance: AZD-1222
     Dosage: , UNK, COVID-19 VACCINE NRVV AD (CHADOX1 NCOV-19UNK
     Route: 030
     Dates: start: 20211021
  30. ASTRAZENECA COVID-19 VACCINE [Suspect]
     Active Substance: AZD-1222
     Dosage: UNK, COVID-19 VACCINE NRVV AD (CHADOX1 NCOV-19
     Route: 030
     Dates: start: 20211221, end: 20211221
  31. ASTRAZENECA COVID-19 VACCINE [Suspect]
     Active Substance: AZD-1222
     Dosage: , UNK, COVID-19 VACCINE NRVV AD (CHADOX1 NCOV-19UNK
     Route: 030
     Dates: start: 20221214
  32. ASTRAZENECA COVID-19 VACCINE [Suspect]
     Active Substance: AZD-1222
     Dosage: UNK, COVID-19 VACCINE NRVV AD (CHADOX1 NCOV-19
     Route: 030
     Dates: start: 20210703
  33. DIGOXIN [Suspect]
     Active Substance: DIGOXIN
     Indication: Cerebrovascular accident prophylaxis
     Dosage: 63 MICROGRAM, QD
     Route: 065
  34. DIGOXIN [Suspect]
     Active Substance: DIGOXIN
     Indication: Atrial fibrillation
     Dosage: 62.5 MICROGRAM, QD
     Route: 065
  35. FELODIPINE [Suspect]
     Active Substance: FELODIPINE
     Indication: Blood pressure abnormal
     Dosage: UNK
     Route: 065
  36. HYDROCHLOROTHIAZIDE [Suspect]
     Active Substance: HYDROCHLOROTHIAZIDE
     Indication: Product used for unknown indication
     Dosage: 2 MILLIGRAM, QD
     Route: 048
  37. IMDUR [Suspect]
     Active Substance: ISOSORBIDE MONONITRATE
     Indication: Product used for unknown indication
     Dosage: 50 MILLIGRAM, QD
     Route: 048
  38. ISOSORBIDE DINITRATE [Suspect]
     Active Substance: ISOSORBIDE DINITRATE
     Indication: Product used for unknown indication
     Dosage: 50 MILLIGRAM, QD
     Route: 048
  39. ISOSORBIDE MONONITRATE [Suspect]
     Active Substance: ISOSORBIDE MONONITRATE
     Indication: Product used for unknown indication
     Dosage: 50 MILLIGRAM, QD ((MODIFIED-RELEASE CAPSULE, HARD)
     Route: 048
  40. ISOSORBIDE MONONITRATE [Suspect]
     Active Substance: ISOSORBIDE MONONITRATE
     Dosage: 50 MILLIGRAM
     Route: 048
  41. NAPROXEN [Suspect]
     Active Substance: NAPROXEN
     Indication: Product used for unknown indication
     Dosage: UNK (NAPROXEN SODIUM)
     Route: 065
  42. SIMVASTATIN [Suspect]
     Active Substance: SIMVASTATIN
     Indication: Product used for unknown indication
     Dosage: 40 MILLIGRAM, QD, FILM COATED TABLETS
     Route: 048
  43. SIMVASTATIN [Suspect]
     Active Substance: SIMVASTATIN
     Dosage: UNK
     Route: 065
     Dates: start: 20221123
  44. AMITRIPTYLINE HYDROCHLORIDE [Concomitant]
     Active Substance: AMITRIPTYLINE HYDROCHLORIDE
     Indication: Product used for unknown indication
     Dosage: UNK
     Route: 065
     Dates: start: 20221123
  45. BENDROFLUMETHIAZIDE [Concomitant]
     Active Substance: BENDROFLUMETHIAZIDE
     Indication: Product used for unknown indication
     Dosage: UNK UNK, QD
     Route: 065
     Dates: start: 20221123
  46. ESTRIOL [Concomitant]
     Active Substance: ESTRIOL
     Indication: Product used for unknown indication
     Dosage: UNK
     Route: 065
     Dates: start: 20221123
  47. FOSFOMYCIN [Concomitant]
     Active Substance: FOSFOMYCIN
     Indication: Product used for unknown indication
     Dosage: UNK
     Route: 065
     Dates: start: 20221123
  48. ALBUTEROL SULFATE [Concomitant]
     Active Substance: ALBUTEROL SULFATE
     Indication: Product used for unknown indication
     Dosage: UNK
     Route: 065
     Dates: start: 20220818
  49. ATORVASTATIN [Concomitant]
     Active Substance: ATORVASTATIN
     Indication: Product used for unknown indication
     Dosage: UNK
     Route: 065
     Dates: start: 20220318
  50. CHLORAMPHENICOL [Concomitant]
     Active Substance: CHLORAMPHENICOL
     Indication: Product used for unknown indication
     Dosage: UNK
     Route: 065
     Dates: start: 20220318
  51. CITALOPRAM [Concomitant]
     Active Substance: CITALOPRAM HYDROBROMIDE
     Indication: Product used for unknown indication
     Dosage: UNK
     Route: 065
     Dates: start: 20220318

REACTIONS (73)
  - Transient ischaemic attack [Recovered/Resolved]
  - Carotid artery occlusion [Recovered/Resolved]
  - COVID-19 [Recovered/Resolved]
  - Cardiospasm [Not Recovered/Not Resolved]
  - Palmoplantar keratoderma [Not Recovered/Not Resolved]
  - Subarachnoid haemorrhage [Recovered/Resolved]
  - Malaise [Unknown]
  - Abdominal discomfort [Recovered/Resolved]
  - Nausea [Recovered/Resolved]
  - Hallucination [Recovered/Resolved]
  - Tinnitus [Not Recovered/Not Resolved]
  - Arthralgia [Recovered/Resolved]
  - Pain of skin [Recovered/Resolved]
  - Peripheral swelling [Recovered/Resolved]
  - Disturbance in attention [Recovered/Resolved]
  - Cognitive disorder [Recovered/Resolved]
  - Memory impairment [Recovering/Resolving]
  - Visual impairment [Not Recovered/Not Resolved]
  - Blindness [Not Recovered/Not Resolved]
  - Blindness [Recovered/Resolved]
  - Diplopia [Not Recovered/Not Resolved]
  - Vasculitis [Not Recovered/Not Resolved]
  - Sleep terror [Recovered/Resolved]
  - Ventricular tachycardia [Not Recovered/Not Resolved]
  - Pericarditis [Not Recovered/Not Resolved]
  - Atrial tachycardia [Not Recovered/Not Resolved]
  - Feeling abnormal [Unknown]
  - Muscle twitching [Unknown]
  - Abdominal pain upper [Not Recovered/Not Resolved]
  - Dehydration [Unknown]
  - Dry skin [Not Recovered/Not Resolved]
  - Eye pruritus [Recovered/Resolved]
  - Facial pain [Recovered/Resolved]
  - Pain [Recovered/Resolved]
  - Anosmia [Recovered/Resolved]
  - Abdominal discomfort [Recovered/Resolved]
  - Immunisation [Recovered/Resolved]
  - Pruritus genital [Recovered/Resolved]
  - Tension headache [Not Recovered/Not Resolved]
  - Migraine [Not Recovered/Not Resolved]
  - Nausea [Not Recovered/Not Resolved]
  - Insomnia [Unknown]
  - Myocardial infarction [Recovered/Resolved]
  - Chest pain [Unknown]
  - Abdominal pain upper [Not Recovered/Not Resolved]
  - Blood glucose increased [Unknown]
  - Pain in extremity [Recovered/Resolved]
  - Amnesia [Not Recovered/Not Resolved]
  - Alopecia [Recovered/Resolved]
  - Pyrexia [Unknown]
  - Fatigue [Recovered/Resolved]
  - Anxiety [Not Recovered/Not Resolved]
  - Vomiting [Recovered/Resolved]
  - Heart rate increased [Unknown]
  - Dyspnoea [Recovered/Resolved]
  - Muscular weakness [Unknown]
  - Palpitations [Unknown]
  - Hyperhidrosis [Unknown]
  - Tachycardia [Unknown]
  - Diarrhoea [Recovered/Resolved]
  - Angioedema [Recovered/Resolved]
  - Lip swelling [Recovering/Resolving]
  - Dizziness [Recovered/Resolved]
  - Pruritus [Recovering/Resolving]
  - Headache [Not Recovered/Not Resolved]
  - Back pain [Recovered/Resolved]
  - Rash [Recovering/Resolving]
  - Headache [Not Recovered/Not Resolved]
  - Malaise [Unknown]
  - Blood glucose increased [Unknown]
  - Intentional product misuse [Unknown]
  - Off label use [Recovered/Resolved]
  - Intentional product use issue [Unknown]

NARRATIVE: CASE EVENT DATE: 20180207
